FAERS Safety Report 13194589 (Version 1)
Quarter: 2017Q1

REPORT INFORMATION
  Report Type: Spontaneous
  Country: IT (occurrence: IT)
  Receive Date: 20170207
  Receipt Date: 20170207
  Transmission Date: 20170428
  Serious: No
  Sender: FDA-Public Use
  Company Number: IT-JAZZ-2016-IT-011421

PATIENT
  Age: 63 Year
  Sex: Female

DRUGS (6)
  1. PRIALT [Suspect]
     Active Substance: ZICONOTIDE ACETATE
     Dosage: 0.25 ?G, QH
     Route: 037
  2. PRIALT [Suspect]
     Active Substance: ZICONOTIDE ACETATE
     Dosage: 0.2 ?G, QH
     Route: 037
  3. PRIALT [Suspect]
     Active Substance: ZICONOTIDE ACETATE
     Indication: MYOFASCIAL PAIN SYNDROME
     Dosage: 0.05 ?G, QH
     Route: 037
  4. HYDROMORPHONE HCL [Suspect]
     Active Substance: HYDROMORPHONE HYDROCHLORIDE
     Dosage: 0.033 MG, QH
     Route: 037
  5. HYDROMORPHONE HCL [Suspect]
     Active Substance: HYDROMORPHONE HYDROCHLORIDE
     Indication: MYOFASCIAL PAIN SYNDROME
     Dosage: 0.05 MG, QH
     Route: 037
  6. HYDROMORPHONE HCL [Suspect]
     Active Substance: HYDROMORPHONE HYDROCHLORIDE
     Dosage: 0.054 MG, QH
     Route: 037

REACTIONS (4)
  - Agitation [Recovered/Resolved]
  - Dysarthria [Not Recovered/Not Resolved]
  - Aggression [Recovered/Resolved]
  - Insomnia [Recovered/Resolved]
